FAERS Safety Report 4664818-2 (Version None)
Quarter: 2005Q2

REPORT INFORMATION
  Report Type: 
  Country: None (occurrence: None)
  Receive Date: 20050516
  Receipt Date: 20050413
  Transmission Date: 20051028
  Serious: Yes (Life-Threatening)
  Sender: FDA-Public Use
  Company Number: DEU-2005-0001340

PATIENT
  Age: 67 Year
  Sex: Female
  Weight: 150 kg

DRUGS (13)
  1. OXYGESIC  CR [Suspect]
     Indication: BACK PAIN
     Dosage: 20 MG, BD, ORAL
     Route: 048
     Dates: start: 20050319, end: 20050320
  2. DEFLAMAT (DICLOFENAC SODIUM) [Concomitant]
  3. CONCOR (BISOPROLOL FUMARATE) [Concomitant]
  4. HYPREN PLUS                  (RAMIPRIL, HYDROCHLOROTHIAZIDE) [Concomitant]
  5. CARVEDILOL [Concomitant]
  6. THROMBO ASS [Concomitant]
  7. GLUCOPHAGE [Concomitant]
  8. ACTRAPID INSULIN NOVO                 (INSULIN) [Concomitant]
  9. METOCLOPRAMIDE HYDROCHLORIDE [Concomitant]
  10. PANTOPRAZOLE SODIUM [Concomitant]
  11. FUROSEMIDE [Concomitant]
  12. PENBENE                       (PHENOXYMETHYLPENICILLIN) [Concomitant]
  13. LOVENOX [Concomitant]

REACTIONS (3)
  - DRUG HYPERSENSITIVITY [None]
  - HAEMODIALYSIS [None]
  - RENAL FAILURE [None]
